FAERS Safety Report 18627839 (Version 1)
Quarter: 2020Q4

REPORT INFORMATION
  Report Type: Spontaneous
  Country: FR (occurrence: FR)
  Receive Date: 20201217
  Receipt Date: 20201217
  Transmission Date: 20210114
  Serious: Yes (Hospitalization, Other)
  Sender: FDA-Public Use
  Company Number: FR-PFIZER INC-2020488648

PATIENT
  Age: 39 Year
  Sex: Female

DRUGS (4)
  1. ZITHROMAX [Suspect]
     Active Substance: AZITHROMYCIN DIHYDRATE
     Indication: HYDROSALPINX
     Dosage: 1000 MG, 1X/DAY
     Route: 048
     Dates: start: 202007, end: 202007
  2. DECAPEPTYL [TRIPTORELIN] [Concomitant]
     Active Substance: TRIPTORELIN
     Indication: IN VITRO FERTILISATION
     Dosage: 3 MG, SINGLE
     Route: 058
     Dates: start: 202007
  3. BEMFOLA [Suspect]
     Active Substance: FOLLITROPIN
     Indication: IN VITRO FERTILISATION
     Dosage: 300 IU, 1X/DAY
     Route: 058
     Dates: start: 202007, end: 202007
  4. OVITRELLE [Suspect]
     Active Substance: CHORIOGONADOTROPIN ALFA
     Indication: IN VITRO FERTILISATION
     Dosage: 1 DF, SINGLE
     Route: 058
     Dates: start: 202007

REACTIONS (3)
  - Off label use [Unknown]
  - Pyrexia [Recovered/Resolved]
  - Pelvic abscess [Recovered/Resolved]

NARRATIVE: CASE EVENT DATE: 202007
